FAERS Safety Report 23215826 (Version 1)
Quarter: 2023Q4

REPORT INFORMATION
  Report Type: Spontaneous
  Country: US (occurrence: US)
  Receive Date: 20231122
  Receipt Date: 20231122
  Transmission Date: 20240110
  Serious: No
  Sender: FDA-Public Use
  Company Number: US-ELI_LILLY_AND_COMPANY-US202311012706

PATIENT
  Age: 25 Year
  Sex: Female

DRUGS (2)
  1. MOUNJARO [Suspect]
     Active Substance: TIRZEPATIDE
     Indication: Weight decreased
     Dosage: 2.5 MG, UNKNOWN
     Route: 058
     Dates: start: 20231114
  2. ALBUTEROL [Concomitant]
     Active Substance: ALBUTEROL
     Indication: Asthma

REACTIONS (7)
  - Upper respiratory tract infection [Recovered/Resolved]
  - Pyrexia [Recovered/Resolved]
  - Emotional distress [Recovered/Resolved]
  - Anxiety [Recovered/Resolved]
  - Off label use [Unknown]
  - Heart rate increased [Recovered/Resolved]
  - Decreased appetite [Recovered/Resolved]

NARRATIVE: CASE EVENT DATE: 20231115
